FAERS Safety Report 24828074 (Version 1)
Quarter: 2025Q1

REPORT INFORMATION
  Report Type: Spontaneous
  Country: US (occurrence: US)
  Receive Date: 20250109
  Receipt Date: 20250109
  Transmission Date: 20250409
  Serious: Yes (Hospitalization, Other)
  Sender: BRISTOL-MYERS SQUIBB COMPANY
  Company Number: US-BRISTOL-MYERS SQUIBB COMPANY-2025-003580

PATIENT
  Age: 72 Year
  Sex: Female
  Weight: 101.15 kg

DRUGS (1)
  1. ONUREG [Suspect]
     Active Substance: AZACITIDINE
     Indication: Acute myeloid leukaemia
     Dosage: DAILY FOR 14 DAYS OF A 28 DAY CYCLE
     Route: 048

REACTIONS (2)
  - Drug ineffective [Unknown]
  - Acute myeloid leukaemia recurrent [Unknown]
